FAERS Safety Report 21600070 (Version 1)
Quarter: 2022Q4

REPORT INFORMATION
  Report Type: Report from Study
  Country: US (occurrence: US)
  Receive Date: 20221116
  Receipt Date: 20221116
  Transmission Date: 20230113
  Serious: Yes (Other)
  Sender: FDA-Public Use
  Company Number: US-ABBVIE-4198710

PATIENT
  Sex: Male

DRUGS (1)
  1. RINVOQ [Suspect]
     Active Substance: UPADACITINIB
     Indication: Product used for unknown indication
     Route: 048
     Dates: start: 202207

REACTIONS (3)
  - Acute haemorrhagic ulcerative colitis [Recovering/Resolving]
  - Back pain [Recovering/Resolving]
  - Intestinal mass [Recovering/Resolving]

NARRATIVE: CASE EVENT DATE: 20220101
